FAERS Safety Report 25456824 (Version 2)
Quarter: 2025Q4

REPORT INFORMATION
  Report Type: Spontaneous
  Country: US (occurrence: US)
  Receive Date: 20250619
  Receipt Date: 20251117
  Transmission Date: 20260118
  Serious: No
  Sender: SANOFI AVENTIS
  Company Number: US-SA-2025SA172876

PATIENT
  Age: 14 Year
  Sex: Male

DRUGS (3)
  1. ALPROLIX [Suspect]
     Active Substance: EFTRENONACOG ALFA
     Indication: Factor IX deficiency
     Dosage: INFUSE 4500 UNITS (4275-4725) SLOW IVPUSH ON MONDAYS, WEDNESDAYS, FRIDAYS AND EVERY 24 HOURS AS NEED
     Route: 042
     Dates: start: 202504
  2. ALPROLIX [Suspect]
     Active Substance: EFTRENONACOG ALFA
     Indication: Factor IX deficiency
     Dosage: INFUSE 4500 UNITS (4275-4725) SLOW IVPUSH ON MONDAYS, WEDNESDAYS, FRIDAYS AND EVERY 24 HOURS AS NEED
     Route: 042
     Dates: start: 202504
  3. MYCOPHENOLATE MOFETIL [Concomitant]
     Active Substance: MYCOPHENOLATE MOFETIL
     Dosage: UNK

REACTIONS (1)
  - Haemorrhage [Unknown]

NARRATIVE: CASE EVENT DATE: 20250523
